FAERS Safety Report 5804591-5 (Version None)
Quarter: 2008Q3

REPORT INFORMATION
  Report Type: 
  Country: None (occurrence: None)
  Receive Date: 20080702
  Receipt Date: 20070508
  Transmission Date: 20090109
  Serious: Yes (Disabling)
  Sender: FDA-Public Use
  Company Number: 468943

PATIENT
  Age: 40 Year
  Sex: Female
  Weight: 68 kg

DRUGS (6)
  1. KLONOPIN [Suspect]
     Indication: PANIC ATTACK
     Dosage: 1 PER 12 HOUR ORAL
     Route: 048
     Dates: start: 20050818, end: 20061201
  2. LEVOTHYROXINE SODIUM [Concomitant]
  3. FLUCONAZOLE [Concomitant]
  4. METHYLPREDNISOLONE [Concomitant]
  5. APAP/CODEINE (CODEINE/PARACETAMOL) [Concomitant]
  6. ACIPHEX [Concomitant]

REACTIONS (11)
  - BIOPSY [None]
  - BIOPSY BREAST [None]
  - CHEST PAIN [None]
  - DEPRESSION [None]
  - DIZZINESS [None]
  - DRUG DEPENDENCE [None]
  - ELECTROENCEPHALOGRAM ABNORMAL [None]
  - INSOMNIA [None]
  - NAUSEA [None]
  - PALPITATIONS [None]
  - WITHDRAWAL SYNDROME [None]
